FAERS Safety Report 5839138-0 (Version None)
Quarter: 2008Q3

REPORT INFORMATION
  Report Type: 
  Country: None (occurrence: None)
  Receive Date: 20080808
  Receipt Date: 20080728
  Transmission Date: 20090109
  Serious: Yes (Life-Threatening, Hospitalization, Other)
  Sender: FDA-Public Use
  Company Number: CA-PFIZER INC-2008057536

PATIENT
  Sex: Female
  Weight: 68 kg

DRUGS (5)
  1. SU-011,248 [Suspect]
     Indication: BREAST CANCER
     Dosage: DAILY DOSE:37.5MG
     Route: 048
     Dates: start: 20070808, end: 20070903
  2. HERCEPTIN [Suspect]
     Indication: BREAST CANCER
     Route: 042
  3. TYLENOL [Concomitant]
     Route: 048
     Dates: start: 19700101
  4. MAALOX [Concomitant]
     Route: 048
     Dates: start: 20070814, end: 20070904
  5. OMEPRAZOLE [Concomitant]
     Route: 048
     Dates: start: 20070827, end: 20070905

REACTIONS (2)
  - EPISTAXIS [None]
  - THROMBOCYTOPENIC PURPURA [None]
